FAERS Safety Report 4300301-1 (Version None)
Quarter: 2004Q1

REPORT INFORMATION
  Report Type: 
  Country: None (occurrence: None)
  Receive Date: 20040220
  Receipt Date: 20040213
  Transmission Date: 20041129
  Serious: Yes (Hospitalization)
  Sender: FDA-Public Use
  Company Number: WAES 0402USA01128

PATIENT
  Age: 81 Year
  Sex: Male

DRUGS (4)
  1. IFENPRODIL TARTRATE [Concomitant]
     Indication: CEREBRAL INFARCTION
     Route: 048
     Dates: start: 20020501
  2. COZAAR [Suspect]
     Indication: HYPERTENSION
     Route: 048
     Dates: start: 20020501, end: 20040130
  3. MANIDIPINE HYDROCHLORIDE [Concomitant]
     Indication: HYPERTENSION
     Dates: start: 20020501
  4. PICOSULFATE SODIUM [Concomitant]
     Indication: CONSTIPATION
     Dates: start: 20020501

REACTIONS (1)
  - RHABDOMYOLYSIS [None]
